FAERS Safety Report 19687629 (Version 1)
Quarter: 2021Q3

REPORT INFORMATION
  Report Type: Spontaneous
  Country: DE (occurrence: DE)
  Receive Date: 20210811
  Receipt Date: 20210811
  Transmission Date: 20211014
  Serious: Yes (Other)
  Sender: FDA-Public Use
  Company Number: DE-TAKEDA-2021TEU006823

PATIENT
  Age: 71 Year
  Sex: Male

DRUGS (10)
  1. EVEROLIMUS. [Suspect]
     Active Substance: EVEROLIMUS
     Indication: HODGKIN^S DISEASE
     Dosage: UNK
     Route: 048
  2. TREOSULFAN [Suspect]
     Active Substance: TREOSULFAN
     Indication: OFF LABEL USE
  3. EVEROLIMUS. [Suspect]
     Active Substance: EVEROLIMUS
     Indication: OFF LABEL USE
  4. ETORICOXIB. [Suspect]
     Active Substance: ETORICOXIB
     Indication: HODGKIN^S DISEASE
  5. TREOSULFAN [Suspect]
     Active Substance: TREOSULFAN
     Indication: HODGKIN^S DISEASE
     Dosage: UNK
     Route: 048
  6. DEXAMETHASONE. [Suspect]
     Active Substance: DEXAMETHASONE
     Indication: HODGKIN^S DISEASE
  7. ETORICOXIB. [Suspect]
     Active Substance: ETORICOXIB
     Indication: OFF LABEL USE
     Dosage: UNK
     Route: 048
  8. PIOGLITAZONE. [Suspect]
     Active Substance: PIOGLITAZONE
     Indication: HODGKIN^S DISEASE
     Dosage: UNK
     Route: 048
  9. PIOGLITAZONE. [Suspect]
     Active Substance: PIOGLITAZONE
     Indication: OFF LABEL USE
  10. DEXAMETHASONE. [Suspect]
     Active Substance: DEXAMETHASONE
     Indication: OFF LABEL USE
     Dosage: UNK
     Route: 048

REACTIONS (2)
  - Off label use [Unknown]
  - Haematotoxicity [Unknown]
